FAERS Safety Report 25572605 (Version 2)
Quarter: 2025Q3

REPORT INFORMATION
  Report Type: Spontaneous
  Country: AU (occurrence: AU)
  Receive Date: 20250717
  Receipt Date: 20250728
  Transmission Date: 20251021
  Serious: Yes (Hospitalization, Other)
  Sender: BAYER HEALTHCARE PHARMACEUTICALS INC.
  Company Number: AU-BAYER-2025A092448

PATIENT
  Age: 61 Year
  Sex: Female
  Weight: 76 kg

DRUGS (1)
  1. PRIMOVIST [Suspect]
     Active Substance: GADOXETATE DISODIUM
     Indication: Magnetic resonance imaging hepatobiliary
     Route: 042
     Dates: start: 20250709, end: 20250709

REACTIONS (6)
  - Dyspnoea [Recovered/Resolved with Sequelae]
  - Stridor [Recovered/Resolved with Sequelae]
  - Respiratory tract oedema [Recovered/Resolved with Sequelae]
  - Anaphylactic reaction [None]
  - Musculoskeletal chest pain [None]
  - Oropharyngeal pain [None]

NARRATIVE: CASE EVENT DATE: 20250709
